FAERS Safety Report 4315972-3 (Version None)
Quarter: 2004Q1

REPORT INFORMATION
  Report Type: 
  Country: None (occurrence: None)
  Receive Date: 20040310
  Receipt Date: 20040226
  Transmission Date: 20041129
  Serious: Yes (Hospitalization)
  Sender: FDA-Public Use
  Company Number: 2004010078

PATIENT
  Age: 72 Year
  Sex: Female

DRUGS (4)
  1. NORVASC [Suspect]
     Indication: ILL-DEFINED DISORDER
     Dosage: 5 MG (DAILY), ORAL
     Route: 048
     Dates: start: 20031209, end: 20040102
  2. METILDIGOXIN (METILDIGOXIN) [Suspect]
     Indication: ILL-DEFINED DISORDER
     Dosage: 0.1 MG (DAILY), ORAL
     Route: 048
     Dates: start: 20031209, end: 20040102
  3. VALPROATE SODIUM [Suspect]
     Indication: ILL-DEFINED DISORDER
     Dosage: 800 MG (DAILY), ORAL
     Route: 048
     Dates: start: 20031121, end: 20040102
  4. CEFCAPENE PIVOXIL HYDROCHLORIDE (CEFCAPENE PIVOXIL HYDROCHLORIDE) [Suspect]
     Indication: ILL-DEFINED DISORDER
     Dosage: 300 MG (DAILY), ORAL
     Route: 048
     Dates: start: 20031220, end: 20031223

REACTIONS (1)
  - STEVENS-JOHNSON SYNDROME [None]
